FAERS Safety Report 4916796-6 (Version None)
Quarter: 2006Q1

REPORT INFORMATION
  Report Type: 
  Country: None (occurrence: None)
  Receive Date: 20060216
  Receipt Date: 20060216
  Transmission Date: 20060701
  Serious: No
  Sender: FDA-Public Use
  Company Number: None

PATIENT
  Sex: Male
  Weight: 66.2252 kg

DRUGS (3)
  1. MORPHINE SULFATE [Suspect]
     Dosage: 60 MG 1 PO BID
     Route: 048
  2. METHADONE DISKETTE [Suspect]
     Dosage: 40 MG 2 PO BID
     Route: 048
  3. LORCET-HD [Concomitant]

REACTIONS (4)
  - CONSTIPATION [None]
  - INADEQUATE ANALGESIA [None]
  - NAUSEA [None]
  - PRURITUS [None]
